FAERS Safety Report 15251062 (Version 2)
Quarter: 2018Q3

REPORT INFORMATION
  Report Type: Spontaneous
  Country: BR (occurrence: BR)
  Receive Date: 20180807
  Receipt Date: 20180824
  Transmission Date: 20181010
  Serious: Yes (Other)
  Sender: FDA-Public Use
  Company Number: PHHY2018BR064455

PATIENT
  Sex: Female

DRUGS (8)
  1. DAONIL [Concomitant]
     Active Substance: GLYBURIDE
     Dosage: 5 MG, BID
     Route: 065
  2. DAONIL [Concomitant]
     Active Substance: GLYBURIDE
     Indication: DIABETES MELLITUS
     Dosage: 5 MG, QD
     Route: 065
  3. AMLODIPINE [Concomitant]
     Active Substance: AMLODIPINE BESYLATE
     Indication: HYPERTENSION
     Dosage: 1 DF, QD
     Route: 048
  4. LEVOID [Concomitant]
     Active Substance: LEVOTHYROXINE
     Indication: THYROID DISORDER
     Dosage: UNK
     Route: 048
  5. AZOPT [Suspect]
     Active Substance: BRINZOLAMIDE
     Indication: OPTIC ATROPHY
  6. LOSARTAN. [Concomitant]
     Active Substance: LOSARTAN
     Indication: HYPERTENSION
     Dosage: 2 DF, QD
     Route: 048
  7. AZOPT [Suspect]
     Active Substance: BRINZOLAMIDE
     Indication: GLAUCOMA
     Dosage: 1 GTT, Q12H
     Route: 047
     Dates: start: 20180615
  8. METFORMIN [Concomitant]
     Active Substance: METFORMIN HYDROCHLORIDE
     Indication: DIABETES MELLITUS
     Dosage: 3 DF, QD
     Route: 048
     Dates: start: 20180801

REACTIONS (3)
  - Product quality issue [Unknown]
  - Eye irritation [Recovered/Resolved]
  - Diabetes mellitus [Not Recovered/Not Resolved]
